FAERS Safety Report 7272838-7 (Version None)
Quarter: 2011Q1

REPORT INFORMATION
  Report Type: 
  Country: None (occurrence: None)
  Receive Date: 20110203
  Receipt Date: 20110125
  Transmission Date: 20110831
  Serious: Yes (Hospitalization)
  Sender: FDA-Public Use
  Company Number: JP-B.I. PHARMACEUTICALS,INC./RIDGEFIELD-2011-DE-00732GD

PATIENT
  Sex: Female
  Weight: 41 kg

DRUGS (14)
  1. RIMATIL [Concomitant]
     Indication: RHEUMATOID ARTHRITIS
     Dosage: 4DF
  2. NEUROVITAN /OCTOTIAMINE B2_B6_B12 COMBINED DRUG [Concomitant]
  3. PENTAZOCINE LACTATE [Concomitant]
     Dates: start: 20080731, end: 20080731
  4. NEUROVITAN /OCTOTIAMINE B2_B6_B12 COMBINED DRUG [Concomitant]
  5. FOLIAMIN [Concomitant]
     Dosage: 5 MG
  6. MOBIC [Suspect]
     Indication: RHEUMATOID ARTHRITIS
     Dates: start: 20061101
  7. NEORAL [Concomitant]
     Indication: MYELODYSPLASTIC SYNDROME
     Dosage: 100 MG
  8. DORMICUM [Concomitant]
     Dates: start: 20080731
  9. CALONAL [Concomitant]
  10. NORVASC [Concomitant]
     Indication: HYPERTENSION
     Dosage: 5 MG
  11. PYDOXAL [Concomitant]
     Dosage: 8DF
  12. MAGNESIUM OXIDE [Concomitant]
  13. MUCOSTA [Concomitant]
     Dosage: 200 MG
  14. PURSENNID [Concomitant]

REACTIONS (4)
  - DIVERTICULUM [None]
  - ILEAL ULCER [None]
  - INTESTINAL STENOSIS [None]
  - HAEMATOCHEZIA [None]
